FAERS Safety Report 14775280 (Version 1)
Quarter: 2018Q2

REPORT INFORMATION
  Report Type: Spontaneous
  Country: LT (occurrence: LT)
  Receive Date: 20180418
  Receipt Date: 20180418
  Transmission Date: 20180711
  Serious: Yes (Life-Threatening, Hospitalization)
  Sender: FDA-Public Use
  Company Number: LT-CELGENEUS-LTU-20180403907

PATIENT
  Sex: Female
  Weight: 43 kg

DRUGS (1)
  1. REVLIMID [Suspect]
     Active Substance: LENALIDOMIDE
     Indication: PLASMA CELL MYELOMA
     Route: 048
     Dates: start: 20180225, end: 20180305

REACTIONS (5)
  - Anaemia [Recovering/Resolving]
  - Leukopenia [Recovering/Resolving]
  - Urinary tract infection [Recovering/Resolving]
  - Pneumonia [Recovering/Resolving]
  - Thrombocytopenia [Recovering/Resolving]

NARRATIVE: CASE EVENT DATE: 20180225
